FAERS Safety Report 12399698 (Version 1)
Quarter: 2016Q2

REPORT INFORMATION
  Report Type: Spontaneous
  Country: US (occurrence: US)
  Receive Date: 20160524
  Receipt Date: 20160524
  Transmission Date: 20160815
  Serious: No
  Sender: FDA-Public Use
  Company Number: US-PERNIX THERAPEUTICS-2016PT000095

PATIENT

DRUGS (1)
  1. ZOHYDRO [Suspect]
     Active Substance: HYDROCODONE BITARTRATE
     Indication: PAIN
     Dosage: 20 MG, 1-2 CAPSULES IN THE EVENING
     Dates: start: 201506, end: 201507

REACTIONS (5)
  - Headache [Unknown]
  - Nausea [Unknown]
  - Feeling abnormal [Unknown]
  - Diarrhoea [Unknown]
  - Influenza like illness [Unknown]

NARRATIVE: CASE EVENT DATE: 2015
